FAERS Safety Report 16031444 (Version 3)
Quarter: 2019Q1

REPORT INFORMATION
  Report Type: Spontaneous
  Country: JP (occurrence: JP)
  Receive Date: 20190304
  Receipt Date: 20190319
  Transmission Date: 20190418
  Serious: Yes (Hospitalization)
  Sender: FDA-Public Use
  Company Number: JP-BIOCRYST PHARMACEUTICALS, INC.-2019BCR00088

PATIENT
  Age: 74 Year
  Sex: Female

DRUGS (4)
  1. UNSPECIFIED SYNTHETIC ANTIBACTERIALS [Concomitant]
     Indication: BACTERIAL INFECTION
     Dosage: UNK
     Route: 048
     Dates: start: 20190214
  2. RAPIACTA [Suspect]
     Active Substance: PERAMIVIR
     Indication: INFLUENZA
     Dosage: 300 MG, 1X/DAY
     Route: 042
     Dates: start: 20190214, end: 20190214
  3. RAPIACTA [Suspect]
     Active Substance: PERAMIVIR
     Dosage: 300 MG, 1X/DAY
     Route: 042
     Dates: start: 20190215, end: 20190215
  4. UNSPECIFIED ANTITUSSIVES [Concomitant]
     Indication: BACTERIAL INFECTION
     Dosage: UNK
     Route: 048
     Dates: start: 20190214

REACTIONS (1)
  - Hyponatraemia [Recovered/Resolved]

NARRATIVE: CASE EVENT DATE: 20190215
